FAERS Safety Report 14640073 (Version 4)
Quarter: 2018Q2

REPORT INFORMATION
  Report Type: Spontaneous
  Country: FR (occurrence: FR)
  Receive Date: 20180315
  Receipt Date: 20180601
  Transmission Date: 20180711
  Serious: Yes (Other)
  Sender: FDA-Public Use
  Company Number: FR-MYLANLABS-2018M1016813

PATIENT
  Age: 75 Year
  Sex: Male

DRUGS (5)
  1. BISOPROLOL [Suspect]
     Active Substance: BISOPROLOL
     Indication: PRODUCT USED FOR UNKNOWN INDICATION
     Dosage: 2.5 MG, QD
  2. CORTISONE [Concomitant]
     Active Substance: CORTISONE\HYDROCORTISONE
     Indication: PRODUCT USED FOR UNKNOWN INDICATION
     Dosage: UNK
  3. AMIODARONE HYDROCHLORIDE. [Suspect]
     Active Substance: AMIODARONE HYDROCHLORIDE
     Indication: ARRHYTHMIA
     Dosage: 1 DF, QD
     Dates: start: 20170911, end: 20171209
  4. ELIQUIS [Suspect]
     Active Substance: APIXABAN
     Indication: ANTICOAGULANT THERAPY
     Dosage: UNK
  5. IBUFETUM [Concomitant]
     Active Substance: IBUPROFEN
     Indication: PRODUCT USED FOR UNKNOWN INDICATION
     Dosage: 3 DF, QD,1 APPLICATION THREE TIMES A DA

REACTIONS (20)
  - Muscular weakness [Unknown]
  - Vomiting [Unknown]
  - Oedema peripheral [Unknown]
  - Vertigo [Unknown]
  - Blood creatinine increased [Unknown]
  - Nervousness [Unknown]
  - Nerve injury [Unknown]
  - Fatigue [Unknown]
  - Nausea [Unknown]
  - Constipation [Unknown]
  - Paralysis [Unknown]
  - Tremor [Unknown]
  - Weight decreased [Unknown]
  - Temperature intolerance [Unknown]
  - Off label use [Unknown]
  - Dyspnoea [Unknown]
  - Gait inability [Unknown]
  - Dysgeusia [Unknown]
  - Pain [Unknown]
  - Blindness [Unknown]

NARRATIVE: CASE EVENT DATE: 20171122
